FAERS Safety Report 5913886-6 (Version None)
Quarter: 2008Q4

REPORT INFORMATION
  Report Type: 
  Country: None (occurrence: None)
  Receive Date: 20081009
  Receipt Date: 20080929
  Transmission Date: 20090506
  Serious: Yes (Hospitalization)
  Sender: FDA-Public Use
  Company Number: B0536611A

PATIENT
  Age: 35 Year
  Sex: Female

DRUGS (6)
  1. KIVEXA [Suspect]
     Indication: HIV INFECTION
     Dosage: 1TAB PER DAY
     Route: 048
     Dates: start: 20080526, end: 20080609
  2. PREZISTA [Suspect]
     Indication: HIV INFECTION
     Dosage: 900MG PER DAY
     Route: 048
     Dates: start: 20080526, end: 20080609
  3. RALTEGRAVIR [Suspect]
     Indication: HIV INFECTION
     Dosage: 400MG TWICE PER DAY
     Route: 048
     Dates: start: 20080526, end: 20080609
  4. RIMIFON [Concomitant]
     Indication: PULMONARY TUBERCULOSIS
     Dates: start: 20071009
  5. ANSATIPINE [Concomitant]
     Indication: PULMONARY TUBERCULOSIS
     Dates: start: 20071009
  6. NORVIR [Concomitant]
     Indication: HIV INFECTION
     Route: 065

REACTIONS (2)
  - PRURITUS [None]
  - RASH GENERALISED [None]
